FAERS Safety Report 19904642 (Version 2)
Quarter: 2021Q4

REPORT INFORMATION
  Report Type: Spontaneous
  Country: JP (occurrence: JP)
  Receive Date: 20210930
  Receipt Date: 20211007
  Transmission Date: 20220304
  Serious: Yes (Hospitalization)
  Sender: FDA-Public Use
  Company Number: JP-DSJP-DSJ-2021-131403

PATIENT
  Sex: Female

DRUGS (1)
  1. PRASUGREL HYDROCHLORIDE [Suspect]
     Active Substance: PRASUGREL HYDROCHLORIDE
     Indication: Product used for unknown indication
     Dosage: 2.5 MG, QD
     Route: 048

REACTIONS (1)
  - Hospitalisation [Recovered/Resolved]
